FAERS Safety Report 5649685-2 (Version None)
Quarter: 2008Q1

REPORT INFORMATION
  Report Type: 
  Country: None (occurrence: None)
  Receive Date: 20080304
  Receipt Date: 20080222
  Transmission Date: 20080703
  Serious: No
  Sender: FDA-Public Use
  Company Number: US-BOEHRINGER INGELHEIM GMBH, GERMANY-2008-BP-02687BP

PATIENT
  Sex: Female

DRUGS (4)
  1. ZANTAC 150 [Suspect]
     Indication: DYSPEPSIA
     Route: 048
     Dates: start: 20061001, end: 20061001
  2. ZANTAC 150 [Suspect]
     Route: 048
     Dates: start: 20061001, end: 20061001
  3. XANAX [Concomitant]
  4. PREVACID [Concomitant]

REACTIONS (1)
  - CONTUSION [None]
